FAERS Safety Report 14947649 (Version 1)
Quarter: 2018Q2

REPORT INFORMATION
  Report Type: Spontaneous
  Country: BR (occurrence: BR)
  Receive Date: 20180529
  Receipt Date: 20180529
  Transmission Date: 20180711
  Serious: Yes (Other)
  Sender: FDA-Public Use
  Company Number: BR-SA-2018SA124439

PATIENT
  Age: 9 Year
  Sex: Female
  Weight: 20 kg

DRUGS (5)
  1. CEFAZOLIN SODIUM. [Concomitant]
     Active Substance: CEFAZOLIN SODIUM
     Indication: PROPHYLAXIS
     Dosage: .5 MG,TID
     Dates: start: 20180420, end: 20180420
  2. METAMIZOLE SODIUM [Concomitant]
     Active Substance: METAMIZOLE SODIUM
     Indication: PROPHYLAXIS
     Dosage: 500 MG,QD
     Route: 065
     Dates: start: 20180420, end: 20180420
  3. THYMOGLOBULINE [Suspect]
     Active Substance: LAPINE T-LYMPHOCYTE IMMUNE GLOBULIN
     Indication: IMMUNOSUPPRESSION
     Dosage: 50 MG,QD
     Route: 042
     Dates: start: 20180420, end: 20180421
  4. HYDROCORTISONE. [Concomitant]
     Active Substance: HYDROCORTISONE
     Indication: PROPHYLAXIS
     Dosage: 300 MG,QD
     Route: 042
     Dates: start: 20180420, end: 20180420
  5. RANITIDINE. [Concomitant]
     Active Substance: RANITIDINE
     Indication: PROPHYLAXIS AGAINST GASTROINTESTINAL ULCER
     Dosage: 50 MG,QD
     Route: 065
     Dates: start: 20180420, end: 20180425

REACTIONS (3)
  - Hypotension [Recovered/Resolved]
  - Neurogenic bladder [Unknown]
  - Tachycardia [Recovered/Resolved]

NARRATIVE: CASE EVENT DATE: 20180420
